FAERS Safety Report 13554553 (Version 1)
Quarter: 2017Q2

REPORT INFORMATION
  Report Type: Spontaneous
  Country: US (occurrence: US)
  Receive Date: 20170517
  Receipt Date: 20170517
  Transmission Date: 20170830
  Serious: No
  Sender: FDA-Public Use
  Company Number: None

PATIENT
  Age: 19 Year
  Sex: Male
  Weight: 57 kg

DRUGS (1)
  1. HYDROMORPHONE 0.2MG/ML MADNET PCA V [Suspect]
     Active Substance: HYDROMORPHONE
     Indication: PAIN
     Dosage: 0.5 MG Q 15^ IV
     Route: 042
     Dates: start: 20170418

REACTIONS (1)
  - Intentional product use issue [None]

NARRATIVE: CASE EVENT DATE: 20170418
